FAERS Safety Report 24092021 (Version 1)
Quarter: 2024Q3

REPORT INFORMATION
  Report Type: Report from Study
  Country: US (occurrence: US)
  Receive Date: 20240715
  Receipt Date: 20240715
  Transmission Date: 20241017
  Serious: Yes (Hospitalization)
  Sender: BAYER
  Company Number: US-BAYER-2024A100924

PATIENT
  Age: 52 Year
  Sex: Male
  Weight: 69.841 kg

DRUGS (13)
  1. ADEMPAS [Suspect]
     Active Substance: RIOCIGUAT
     Indication: Pulmonary arterial hypertension
     Dosage: UNK
     Dates: start: 20240515
  2. ADEMPAS [Suspect]
     Active Substance: RIOCIGUAT
     Indication: Pulmonary arterial hypertension
     Dosage: 2.5 MG, TID
     Route: 048
  3. VITAMIN C [Concomitant]
     Active Substance: ASCORBIC ACID
  4. VITAMINS [Concomitant]
     Active Substance: VITAMINS
  5. LASIX [Concomitant]
     Active Substance: FUROSEMIDE
  6. LYRICA [Concomitant]
     Active Substance: PREGABALIN
  7. CARDIZEM CD [Concomitant]
     Active Substance: DILTIAZEM HYDROCHLORIDE
  8. LETAIRIS [Concomitant]
     Active Substance: AMBRISENTAN
  9. SYMBICORT [Concomitant]
     Active Substance: BUDESONIDE\FORMOTEROL FUMARATE DIHYDRATE
  10. ASPIRIN [Concomitant]
     Active Substance: ASPIRIN
  11. IRON [Concomitant]
     Active Substance: IRON
  12. ORENITRAM [Concomitant]
     Active Substance: TREPROSTINIL
  13. DEXILANT [Concomitant]
     Active Substance: DEXLANSOPRAZOLE

REACTIONS (3)
  - Arrhythmia [None]
  - Oedema peripheral [None]
  - Localised oedema [None]

NARRATIVE: CASE EVENT DATE: 20240705
